FAERS Safety Report 6162223-3 (Version None)
Quarter: 2009Q2

REPORT INFORMATION
  Report Type: 
  Country: None (occurrence: None)
  Receive Date: 20090417
  Receipt Date: 20090417
  Transmission Date: 20091009
  Serious: Yes (Other)
  Sender: FDA-Public Use
  Company Number: None

PATIENT
  Age: 32 Year
  Sex: Female
  Weight: 56.246 kg

DRUGS (1)
  1. ZOLOFT [Suspect]
     Indication: IRRITABLE BOWEL SYNDROME
     Dosage: 50MG DAILY PO
     Route: 048
     Dates: start: 20081210, end: 20090415

REACTIONS (9)
  - ABNORMAL BEHAVIOUR [None]
  - AGITATION [None]
  - ANXIETY [None]
  - DISTURBANCE IN ATTENTION [None]
  - FEELING ABNORMAL [None]
  - FORMICATION [None]
  - NIGHTMARE [None]
  - PERSONALITY DISORDER [None]
  - THINKING ABNORMAL [None]
